FAERS Safety Report 7213394-9 (Version None)
Quarter: 2011Q1

REPORT INFORMATION
  Report Type: 
  Country: None (occurrence: None)
  Receive Date: 20110106
  Receipt Date: 20101229
  Transmission Date: 20110831
  Serious: Yes (Hospitalization, Other)
  Sender: FDA-Public Use
  Company Number: US-TEVA-261667USA

PATIENT
  Age: 26 Year
  Sex: Female

DRUGS (2)
  1. BACLOFEN [Suspect]
     Route: 048
  2. MILNACIPRAN [Suspect]
     Indication: FIBROMYALGIA
     Route: 048
     Dates: start: 20101103, end: 20101103

REACTIONS (3)
  - MULTIPLE DRUG OVERDOSE INTENTIONAL [None]
  - UNRESPONSIVE TO STIMULI [None]
  - SUICIDE ATTEMPT [None]
